FAERS Safety Report 9135478 (Version 2)
Quarter: 2013Q2

REPORT INFORMATION
  Report Type: Spontaneous
  Country: FR (occurrence: FR)
  Receive Date: 20130304
  Receipt Date: 20130408
  Transmission Date: 20140414
  Serious: Yes (Life-Threatening)
  Sender: FDA-Public Use
  Company Number: FR-PFIZER INC-2013072723

PATIENT
  Age: 26 Year
  Sex: Female

DRUGS (2)
  1. CYTOTEC [Suspect]
     Indication: EVACUATION OF RETAINED PRODUCTS OF CONCEPTION
     Dosage: 400 UG, 2X/DAY
     Route: 067
     Dates: start: 20121213, end: 20121213
  2. MIFEGYNE [Suspect]
     Indication: EVACUATION OF RETAINED PRODUCTS OF CONCEPTION
     Dosage: 600 MG, SINGLE
     Route: 048
     Dates: start: 20121212, end: 20121212

REACTIONS (4)
  - Off label use [Unknown]
  - Partial seizures with secondary generalisation [Recovered/Resolved]
  - Respiratory arrest [Recovered/Resolved]
  - Pyrexia [Recovered/Resolved]
